FAERS Safety Report 8448269-0 (Version None)
Quarter: 2012Q2

REPORT INFORMATION
  Report Type: 
  Country: None (occurrence: None)
  Receive Date: 20120619
  Receipt Date: 20120612
  Transmission Date: 20120825
  Serious: Yes (Other)
  Sender: FDA-Public Use
  Company Number: US-BAYER-2012-052238

PATIENT
  Age: 66 Year
  Sex: Female

DRUGS (1)
  1. NEXAVAR [Suspect]
     Indication: HEPATIC NEOPLASM MALIGNANT
     Dosage: 200 MG, BID
     Dates: start: 20120517

REACTIONS (10)
  - STOMATITIS [None]
  - SKIN PAPILLOMA [None]
  - MELANOCYTIC NAEVUS [None]
  - PAIN IN EXTREMITY [None]
  - GAIT DISTURBANCE [None]
  - OEDEMA PERIPHERAL [None]
  - RASH [None]
  - DIPLOPIA [None]
  - BLISTER [None]
  - SKIN ULCER [None]
